FAERS Safety Report 16895885 (Version 2)
Quarter: 2019Q4

REPORT INFORMATION
  Report Type: Spontaneous
  Country: ES (occurrence: ES)
  Receive Date: 20191008
  Receipt Date: 20191029
  Transmission Date: 20200122
  Serious: Yes (Other)
  Sender: FDA-Public Use
  Company Number: ES-TEVA-2019-ES-1118488

PATIENT
  Age: 53 Year
  Sex: Female

DRUGS (3)
  1. OBINUTUZUMAB. [Concomitant]
     Active Substance: OBINUTUZUMAB
     Indication: CHRONIC LYMPHOCYTIC LEUKAEMIA STAGE 0
     Route: 065
     Dates: start: 201709
  2. FLUDARABINE [Suspect]
     Active Substance: FLUDARABINE PHOSPHATE
     Indication: CHRONIC LYMPHOCYTIC LEUKAEMIA STAGE 0
     Dosage: ADMINISTERED ON DAYS 6, 5 AND 4
     Route: 065
     Dates: start: 2017, end: 2017
  3. CYCLOPHOSPHAMIDE. [Suspect]
     Active Substance: CYCLOPHOSPHAMIDE
     Indication: CHRONIC LYMPHOCYTIC LEUKAEMIA STAGE 0
     Dosage: ADMINISTERED ON DAYS 6, 5 AND 4
     Route: 065
     Dates: start: 2017, end: 2017

REACTIONS (1)
  - Cytokine release syndrome [Recovering/Resolving]
